FAERS Safety Report 21966125 (Version 1)
Quarter: 2023Q1

REPORT INFORMATION
  Report Type: Spontaneous
  Country: CA (occurrence: CA)
  Receive Date: 20230208
  Receipt Date: 20230208
  Transmission Date: 20230417
  Serious: Yes (Life-Threatening, Hospitalization, Other)
  Sender: FDA-Public Use
  Company Number: None

PATIENT
  Age: 10 Year
  Sex: Male

DRUGS (15)
  1. IBUPROFEN [Interacting]
     Active Substance: IBUPROFEN
     Indication: Pain
     Dosage: 600 MILLIGRAM, QID
     Route: 048
     Dates: start: 20180128, end: 20180207
  2. DESMOPRESSIN [Suspect]
     Active Substance: DESMOPRESSIN
     Indication: Diabetes insipidus
     Dosage: 1.6 MILLIGRAM, QID
     Route: 048
  3. DESMOPRESSIN [Suspect]
     Active Substance: DESMOPRESSIN
     Dosage: 10 MICROGRAM
     Route: 045
     Dates: end: 201802
  4. DESMOPRESSIN [Suspect]
     Active Substance: DESMOPRESSIN
     Dosage: 0.6 MILLIGRAM (AS NECESSARY)
     Route: 065
     Dates: start: 20180203, end: 20180206
  5. DESMOPRESSIN [Suspect]
     Active Substance: DESMOPRESSIN
     Dosage: 0.5 MILLIGRAM, BID (AT DISCHARGE)
     Route: 065
  6. DESMOPRESSIN [Suspect]
     Active Substance: DESMOPRESSIN
     Dosage: 0.1 MILLIGRAM, PRN (AT DISCHARGE)
     Route: 065
  7. DESMOPRESSIN [Suspect]
     Active Substance: DESMOPRESSIN
     Dosage: 1.4 MILLIGRAM QAM (5 MONTHS POST ADMISSION)
     Route: 065
  8. DESMOPRESSIN [Suspect]
     Active Substance: DESMOPRESSIN
     Dosage: 0.6 MILLIGRAM QPM, (5 MONTHS POST ADMISSION)
     Route: 065
  9. DESMOPRESSIN [Suspect]
     Active Substance: DESMOPRESSIN
     Dosage: 1.4 MILLIGRAM QHS, (5 MONTHS POST ADMISSION)
     Route: 065
  10. HYDROMORPHONE [Interacting]
     Active Substance: HYDROMORPHONE
     Indication: Pain
     Dosage: 1 MILLIGRAM, EVERY FOUR HOURS
     Route: 065
     Dates: start: 20180127, end: 20180202
  11. HYDROMORPHONE [Interacting]
     Active Substance: HYDROMORPHONE
     Dosage: 2 MILLIGRAM, EVERY 4 HOUR
     Route: 065
     Dates: start: 20180127, end: 20180202
  12. HYDROCORTISONE [Concomitant]
     Active Substance: HYDROCORTISONE
     Indication: Diabetes insipidus
     Dosage: 6 MILLIGRAM, BID, (EVERY 12 HOUR)
     Route: 048
  13. HYDROCORTISONE [Concomitant]
     Active Substance: HYDROCORTISONE
     Dosage: 15 MILLIGRAM, TID (EVERY 8 HOUR)
     Route: 048
  14. HYDROCORTISONE [Concomitant]
     Active Substance: HYDROCORTISONE
     Dosage: UNK
     Route: 065
  15. SOMATROPIN [Concomitant]
     Active Substance: SOMATROPIN
     Indication: Product used for unknown indication
     Dosage: 1.3 MILLIGRAM, QD
     Route: 058

REACTIONS (5)
  - Hyponatraemia [Recovered/Resolved]
  - Seizure [Recovered/Resolved]
  - Drug interaction [Recovered/Resolved]
  - Unresponsive to stimuli [Recovered/Resolved]
  - Apnoeic attack [Recovered/Resolved]

NARRATIVE: CASE EVENT DATE: 20180202
